FAERS Safety Report 4935475-2 (Version None)
Quarter: 2006Q1

REPORT INFORMATION
  Report Type: 
  Country: None (occurrence: None)
  Receive Date: 20060307
  Receipt Date: 20050912
  Transmission Date: 20060701
  Serious: Yes (Other)
  Sender: FDA-Public Use
  Company Number: US-GLAXOSMITHKLINE-A0573876A

PATIENT
  Age: 53 Year
  Sex: Female

DRUGS (10)
  1. FLOVENT [Suspect]
     Indication: ASTHMA
     Dosage: 4PUFF TWICE PER DAY
     Route: 055
     Dates: start: 20050301
  2. ALBUTEROL [Concomitant]
  3. ATROVENT [Concomitant]
  4. SEREVENT [Concomitant]
  5. UNSPECIFIED MEDICATION [Concomitant]
  6. RHINOCORT [Concomitant]
  7. CHLOR-TRIMETON [Concomitant]
  8. PROTONIX [Concomitant]
  9. XANAX [Concomitant]
  10. UNSPECIFIED MEDICATION [Concomitant]

REACTIONS (3)
  - ASTHMA [None]
  - PHARMACEUTICAL PRODUCT COMPLAINT [None]
  - WHEEZING [None]
